FAERS Safety Report 8495697-3 (Version None)
Quarter: 2012Q3

REPORT INFORMATION
  Report Type: 
  Country: None (occurrence: None)
  Receive Date: 20120709
  Receipt Date: 20120705
  Transmission Date: 20120928
  Serious: No
  Sender: FDA-Public Use
  Company Number: US-PFIZER INC-2012161658

PATIENT
  Sex: Female
  Weight: 68.027 kg

DRUGS (5)
  1. BISMATROL [Concomitant]
     Dosage: UNK
  2. ZOLOFT [Suspect]
     Indication: ANXIETY
     Dosage: 100 MG, 1X/DAY
     Route: 048
     Dates: start: 20120620, end: 20120624
  3. CELEXA [Concomitant]
     Dosage: UNK
  4. TRAZODONE [Concomitant]
     Indication: INSOMNIA
     Dosage: UNK
  5. ZOLOFT [Suspect]
     Indication: DEPRESSION

REACTIONS (4)
  - MALAISE [None]
  - NAUSEA [None]
  - VOMITING [None]
  - DRUG HYPERSENSITIVITY [None]
